FAERS Safety Report 11740716 (Version 2)
Quarter: 2015Q4

REPORT INFORMATION
  Report Type: Spontaneous
  Country: US (occurrence: US)
  Receive Date: 20151110
  Receipt Date: 20151120
  Transmission Date: 20160304
  Serious: Yes (Other)
  Sender: FDA-Public Use
  Company Number: US-ELI_LILLY_AND_COMPANY-US201209000479

PATIENT
  Age: 86 Year
  Sex: Female

DRUGS (3)
  1. FORTEO [Suspect]
     Active Substance: TERIPARATIDE
     Dosage: 20 UG, QD
     Dates: start: 201207
  2. FORTEO [Suspect]
     Active Substance: TERIPARATIDE
     Indication: OSTEOPOROSIS
     Dosage: 20 U, QD
     Dates: start: 201207
  3. FORTEO [Suspect]
     Active Substance: TERIPARATIDE
     Dosage: 20 UG, QD
     Dates: start: 201207

REACTIONS (10)
  - Syncope [Unknown]
  - Pain [Unknown]
  - Injection site bruising [Unknown]
  - Abdominal distension [Not Recovered/Not Resolved]
  - Movement disorder [Unknown]
  - Injection site pain [Unknown]
  - Movement disorder [Not Recovered/Not Resolved]
  - Injection site pain [Unknown]
  - Musculoskeletal disorder [Unknown]
  - Gait disturbance [Not Recovered/Not Resolved]

NARRATIVE: CASE EVENT DATE: 201208
